FAERS Safety Report 22199148 (Version 1)
Quarter: 2023Q2

REPORT INFORMATION
  Report Type: Report from Study
  Country: IT (occurrence: IT)
  Receive Date: 20230411
  Receipt Date: 20230411
  Transmission Date: 20230721
  Serious: Yes (Hospitalization, Other)
  Sender: FDA-Public Use
  Company Number: None

PATIENT
  Age: 12 Year
  Sex: Female
  Weight: 50 kg

DRUGS (8)
  1. METHOTREXATE SODIUM [Suspect]
     Active Substance: METHOTREXATE SODIUM
     Indication: Acute lymphocytic leukaemia recurrent
     Dosage: 155 MG INFUSION OVER 30 MIN. + 1397 MG SLOW INFUSION OVER 23.5 H
     Route: 065
     Dates: start: 20221115, end: 20221116
  2. VINCRISTINE [Suspect]
     Active Substance: VINCRISTINE
     Indication: Acute lymphocytic leukaemia recurrent
     Dosage: 2 MILLIGRAM DAILY; 2 MG/DAY , VINCRISTINA TEVA ITALIA
     Route: 065
     Dates: start: 20221115, end: 20221121
  3. PURINETHOL [Suspect]
     Active Substance: MERCAPTOPURINE
     Indication: Acute lymphocytic leukaemia recurrent
     Dosage: 150 MILLIGRAM DAILY; 150 MG/DAY
     Route: 065
     Dates: start: 20221115, end: 20221119
  4. ONCASPAR [Suspect]
     Active Substance: PEGASPARGASE
     Indication: Acute lymphocytic leukaemia recurrent
     Dosage: 1553 IU (INTERNATIONAL UNIT) DAILY; 1553 IU/DAY
     Route: 065
     Dates: start: 20221122, end: 20221122
  5. CYTARABINE [Suspect]
     Active Substance: CYTARABINE
     Indication: Acute lymphocytic leukaemia recurrent
     Dosage: 3105 MG X 2 SUMS/DAY
     Route: 065
     Dates: start: 20221118, end: 20221118
  6. DECAPEPTYL [Concomitant]
     Indication: Product used for unknown indication
     Route: 065
     Dates: start: 20221125, end: 20221125
  7. OMEPRAZOLE [Concomitant]
     Active Substance: OMEPRAZOLE
     Indication: Product used for unknown indication
     Dates: start: 20221125
  8. INSULIN GLARGINE [Concomitant]
     Active Substance: INSULIN GLARGINE
     Indication: Product used for unknown indication
     Dosage: 5 IU (INTERNATIONAL UNIT) DAILY; 5IU/DAY
     Route: 065
     Dates: start: 20221117, end: 20221124

REACTIONS (5)
  - Enterococcal infection [Unknown]
  - Fusarium infection [Recovered/Resolved]
  - Pancytopenia [Recovered/Resolved]
  - Stomatitis [Recovered/Resolved]
  - Achromobacter infection [Recovered/Resolved]

NARRATIVE: CASE EVENT DATE: 20221117
